FAERS Safety Report 18360873 (Version 4)
Quarter: 2021Q2

REPORT INFORMATION
  Report Type: Spontaneous
  Country: US (occurrence: US)
  Receive Date: 20201008
  Receipt Date: 20210419
  Transmission Date: 20210717
  Serious: Yes (Other)
  Sender: FDA-Public Use
  Company Number: US-SAREPTA THERAPEUTICS INC.-SRP2020-000910

PATIENT
  Sex: Male
  Weight: 119.27 kg

DRUGS (1)
  1. EXONDYS 51 [Suspect]
     Active Substance: ETEPLIRSEN
     Indication: DUCHENNE MUSCULAR DYSTROPHY
     Dosage: 3800 MILLIGRAM, WEEKLY
     Route: 042
     Dates: start: 20170613

REACTIONS (4)
  - C-reactive protein increased [Unknown]
  - Pulmonary function test decreased [Unknown]
  - Blood creatine phosphokinase increased [Unknown]
  - Myocardial infarction [Unknown]
